FAERS Safety Report 13814286 (Version 2)
Quarter: 2017Q4

REPORT INFORMATION
  Report Type: Other
  Country: GB (occurrence: GB)
  Receive Date: 20170731
  Receipt Date: 20171110
  Transmission Date: 20180320
  Serious: Yes (Death, Hospitalization, Other)
  Sender: FDA-Public Use
  Company Number: GB-LUPIN PHARMACEUTICALS INC.-2017-04068

PATIENT

DRUGS (4)
  1. LETROZOLE. [Concomitant]
     Active Substance: LETROZOLE
     Indication: PRODUCT USED FOR UNKNOWN INDICATION
     Dosage: 2.5 MG, UNK
     Route: 065
  2. SERTRALINE [Suspect]
     Active Substance: SERTRALINE HYDROCHLORIDE
     Dosage: 150 MG, UNK
     Route: 048
     Dates: start: 20170602
  3. SERTRALINE [Suspect]
     Active Substance: SERTRALINE HYDROCHLORIDE
     Indication: MAJOR DEPRESSION
     Dosage: 100 MG, UNK
     Route: 048
     Dates: start: 201510, end: 20170602
  4. PRIADEL                            /00033702/ [Suspect]
     Active Substance: LITHIUM CARBONATE
     Indication: MAJOR DEPRESSION
     Dosage: 400 MG, UNK (MODIFIED RELEASE)
     Route: 048
     Dates: start: 201510

REACTIONS (4)
  - Cardiac arrest [Not Recovered/Not Resolved]
  - Brain injury [Fatal]
  - Long QT syndrome [Not Recovered/Not Resolved]
  - Arrhythmia [Not Recovered/Not Resolved]

NARRATIVE: CASE EVENT DATE: 20170605
